FAERS Safety Report 8960655 (Version 1)
Quarter: 2012Q4

REPORT INFORMATION
  Report Type: 
  Country: US (occurrence: US)
  Receive Date: 20121212
  Receipt Date: 20121212
  Transmission Date: 20130627
  Serious: No
  Sender: FDA-Public Use
  Company Number: US-PFIZER INC-2012311884

PATIENT
  Sex: Male

DRUGS (8)
  1. LIPITOR [Suspect]
     Indication: HIGH CHOLESTEROL
     Dosage: 10 mg, 1x/day
     Route: 048
     Dates: start: 2000
  2. LIPITOR [Suspect]
     Dosage: 20 mg, 1x/day
     Route: 048
  3. LIPITOR [Suspect]
     Dosage: 40 mg, 1x/day
     Route: 048
  4. LIPITOR [Suspect]
     Dosage: 80 mg, 1x/day
     Route: 048
     Dates: end: 201211
  5. NORVASC [Suspect]
     Indication: BLOOD PRESSURE HIGH
     Dosage: 10 mg, 1x/day
     Route: 048
     Dates: start: 2000, end: 201211
  6. ASPIRIN [Concomitant]
     Dosage: 325 mg, UNK
  7. ALTACE [Concomitant]
     Dosage: 10 mg, UNK
  8. ATENOLOL [Concomitant]
     Dosage: 50 mg, UNK

REACTIONS (1)
  - Blood pressure increased [Unknown]
